FAERS Safety Report 5141226-1 (Version None)
Quarter: 2006Q4

REPORT INFORMATION
  Report Type: 
  Country: None (occurrence: None)
  Receive Date: 20061026
  Receipt Date: 20061017
  Transmission Date: 20070319
  Serious: Yes (Other)
  Sender: FDA-Public Use
  Company Number: 2006127735

PATIENT
  Age: 50 Year
  Sex: Male
  Weight: 68.0396 kg

DRUGS (2)
  1. CHANTIX [Suspect]
     Indication: SMOKING CESSATION THERAPY
     Dosage: 1 MG
     Dates: start: 20061001, end: 20061001
  2. FENTANYL CITRATE [Concomitant]

REACTIONS (2)
  - IMPAIRED WORK ABILITY [None]
  - VISION BLURRED [None]
